FAERS Safety Report 5092077-8 (Version None)
Quarter: 2006Q3

REPORT INFORMATION
  Report Type: 
  Country: None (occurrence: None)
  Receive Date: 20060825
  Receipt Date: 20060815
  Transmission Date: 20061208
  Serious: Yes (Other)
  Sender: FDA-Public Use
  Company Number: GXKR2006GB04765

PATIENT
  Age: 74 Year
  Sex: Female
  Weight: 63.5 kg

DRUGS (5)
  1. METFORMIN [Suspect]
     Indication: DIABETES MELLITUS
     Dosage: 500 MG, TID, ORAL
     Route: 048
     Dates: start: 20060418, end: 20060615
  2. ASPIRIN [Concomitant]
  3. ATENOLOL [Concomitant]
  4. PANTOPRAZOLE SODIUM [Concomitant]
  5. SIMVASTATIN [Concomitant]

REACTIONS (2)
  - CHEST DISCOMFORT [None]
  - COUGH [None]
